FAERS Safety Report 4451298-5 (Version None)
Quarter: 2004Q3

REPORT INFORMATION
  Report Type: 
  Country: None (occurrence: None)
  Receive Date: 20040913
  Receipt Date: 20040709
  Transmission Date: 20050211
  Serious: No
  Sender: FDA-Public Use
  Company Number: 2004-BP-05554BP(0)

PATIENT
  Age: 50 Year
  Sex: Female

DRUGS (13)
  1. SPIRIVA [Suspect]
     Indication: CHRONIC OBSTRUCTIVE AIRWAYS DISEASE
     Dosage: 18 MCG (18 MCG,QD IN AM), IH
     Dates: start: 20040705
  2. VERELAN (VERAPAMIL HYDROCHLORIDE) [Concomitant]
  3. MUCINEX (GUAIFENESIN) [Concomitant]
  4. SYNTHROID [Concomitant]
  5. QUIBRON (QUIBRON) [Concomitant]
  6. UNIPHYL [Concomitant]
  7. INTAL INHALER (CROMOGLICATE SODIUM) [Concomitant]
  8. MAXAIR [Concomitant]
  9. BECONASE (BECLOMETASONE DIPROPIONATE) [Concomitant]
  10. ESTRACE [Concomitant]
  11. PRILOSEC [Concomitant]
  12. CALCIUM (CALCIUM) [Concomitant]
  13. VITAMINS (VITAMINS) [Concomitant]

REACTIONS (5)
  - BALANCE DISORDER [None]
  - FEELING ABNORMAL [None]
  - HYPOTENSION [None]
  - INSOMNIA [None]
  - NAUSEA [None]
